FAERS Safety Report 7229242-7 (Version None)
Quarter: 2011Q1

REPORT INFORMATION
  Report Type: 
  Country: None (occurrence: None)
  Receive Date: 20110117
  Receipt Date: 20101123
  Transmission Date: 20110831
  Serious: Yes (Hospitalization)
  Sender: FDA-Public Use
  Company Number: US-BAYER-201038095NA

PATIENT
  Sex: Female
  Weight: 65.306 kg

DRUGS (4)
  1. YASMIN [Suspect]
     Indication: MENOMETRORRHAGIA
  2. YAZ [Suspect]
     Indication: ACNE
  3. YASMIN [Suspect]
     Indication: ACNE
     Dosage: UNK
     Dates: start: 20020101, end: 20030101
  4. OCELLA [Suspect]
     Indication: ACNE

REACTIONS (5)
  - PULMONARY EMBOLISM [None]
  - CHEST PAIN [None]
  - HAEMOPTYSIS [None]
  - DYSPNOEA [None]
  - PNEUMONIA [None]
